FAERS Safety Report 8821567 (Version 1)
Quarter: 2012Q4

REPORT INFORMATION
  Report Type: 
  Country: US (occurrence: US)
  Receive Date: 20121002
  Receipt Date: 20121002
  Transmission Date: 20130627
  Serious: No
  Sender: FDA-Public Use
  Company Number: US-009507513-1209USA011892

PATIENT
  Age: 62 Year
  Sex: Female

DRUGS (1)
  1. MIRALAX [Suspect]
     Indication: CONSTIPATION
     Dosage: 17 g, bid
     Route: 048
     Dates: start: 2012

REACTIONS (3)
  - Flatulence [Recovering/Resolving]
  - Abdominal distension [Recovering/Resolving]
  - Overdose [Unknown]
